FAERS Safety Report 6689321-X (Version None)
Quarter: 2010Q2

REPORT INFORMATION
  Report Type: 
  Country: None (occurrence: None)
  Receive Date: 20100420
  Receipt Date: 20100407
  Transmission Date: 20101027
  Serious: Yes (Hospitalization)
  Sender: FDA-Public Use
  Company Number: JP-ELI_LILLY_AND_COMPANY-JP201004004128

PATIENT
  Age: 41 Year
  Sex: Male

DRUGS (3)
  1. ZYPREXA [Suspect]
     Indication: SCHIZOPHRENIA, DISORGANISED TYPE
     Dosage: 40 MG, UNK
     Route: 048
  2. ZYPREXA [Suspect]
     Dosage: 15 MG, UNK
     Route: 048
  3. CLOZAPINE [Concomitant]
     Indication: SCHIZOPHRENIA, DISORGANISED TYPE

REACTIONS (3)
  - AGRANULOCYTOSIS [None]
  - OVERDOSE [None]
  - PYREXIA [None]
